FAERS Safety Report 6020751-5 (Version None)
Quarter: 2008Q4

REPORT INFORMATION
  Report Type: 
  Country: None (occurrence: None)
  Receive Date: 20081229
  Receipt Date: 20081216
  Transmission Date: 20090506
  Serious: Yes (Other)
  Sender: FDA-Public Use
  Company Number: PHHY2008JP32607

PATIENT
  Sex: Female
  Weight: 70 kg

DRUGS (2)
  1. DIOVAN [Suspect]
     Indication: HYPERTENSION
     Dosage: 80 MG
     Route: 048
     Dates: start: 20071009, end: 20071223
  2. DIOVAN [Suspect]
     Dosage: 80 MG
     Route: 048
     Dates: start: 20080605, end: 20080916

REACTIONS (6)
  - BLOOD PRESSURE INCREASED [None]
  - DRUG INEFFECTIVE [None]
  - HEADACHE [None]
  - NEUROSURGERY [None]
  - SUBDURAL HAEMATOMA [None]
  - TREATMENT NONCOMPLIANCE [None]
